FAERS Safety Report 5467133-2 (Version None)
Quarter: 2007Q3

REPORT INFORMATION
  Report Type: 
  Country: None (occurrence: None)
  Receive Date: 20070925
  Receipt Date: 20070917
  Transmission Date: 20080115
  Serious: Yes (Other)
  Sender: FDA-Public Use
  Company Number: US-MERCK-0709USA02527

PATIENT
  Sex: Female

DRUGS (2)
  1. FOSAMAX [Suspect]
     Route: 048
     Dates: start: 20020101
  2. LISINOPRIL [Concomitant]
     Indication: HYPERTENSION
     Route: 065

REACTIONS (8)
  - ARTHRALGIA [None]
  - ATRIAL FIBRILLATION [None]
  - BACK DISORDER [None]
  - BACK PAIN [None]
  - BONE NEOPLASM [None]
  - FEMUR FRACTURE [None]
  - PAIN IN EXTREMITY [None]
  - TOOTH DISORDER [None]
